FAERS Safety Report 7314183-7 (Version None)
Quarter: 2011Q1

REPORT INFORMATION
  Report Type: 
  Country: None (occurrence: None)
  Receive Date: 20110225
  Receipt Date: 20100528
  Transmission Date: 20110831
  Serious: No
  Sender: FDA-Public Use
  Company Number: US-MYLANLABS-2010S1009676

PATIENT
  Age: 40 Year
  Sex: Male

DRUGS (4)
  1. CLARAVIS [Suspect]
     Indication: KERATOSIS FOLLICULAR
     Route: 048
     Dates: start: 20100301, end: 20100423
  2. AMNESTEEM [Suspect]
     Route: 048
     Dates: start: 20100528
  3. CLARAVIS [Suspect]
     Route: 048
     Dates: start: 20100528
  4. AMNESTEEM [Suspect]
     Indication: KERATOSIS FOLLICULAR
     Route: 048
     Dates: start: 20100301, end: 20100423

REACTIONS (1)
  - BLOOD CHOLESTEROL INCREASED [None]
